FAERS Safety Report 10695786 (Version 5)
Quarter: 2015Q4

REPORT INFORMATION
  Report Type: Spontaneous
  Country: US (occurrence: US)
  Receive Date: 20150107
  Receipt Date: 20151222
  Transmission Date: 20160304
  Serious: No
  Sender: FDA-Public Use
  Company Number: US-PFIZER INC-2014349169

PATIENT
  Age: 69 Year
  Sex: Male
  Weight: 86.17 kg

DRUGS (11)
  1. OSCAL [Concomitant]
     Active Substance: CALCIUM CARBONATE
     Dosage: UNK
     Dates: start: 2005
  2. SILDENAFIL. [Concomitant]
     Active Substance: SILDENAFIL
     Dosage: UNK
  3. RAPAMUNE [Suspect]
     Active Substance: SIROLIMUS
     Indication: LIVER TRANSPLANT
     Dosage: 0.5 MG, 1 DAILY AND 1 MG 1 DAILY
     Route: 048
     Dates: start: 200506
  4. CALCIUM [Concomitant]
     Active Substance: CALCIUM
     Dosage: UNK
     Dates: start: 2005
  5. RAPAMUNE [Suspect]
     Active Substance: SIROLIMUS
     Indication: CHOLANGIOCARCINOMA
  6. ASPIRIN. [Concomitant]
     Active Substance: ASPIRIN
     Dosage: UNK
     Dates: start: 2007
  7. MVI [Concomitant]
     Active Substance: VITAMINS
     Dosage: UNK
     Dates: start: 2005
  8. VITAMIN D [Concomitant]
     Active Substance: CHOLECALCIFEROL
     Dosage: 50000 IU, OCCASIONALLY ONCE A WEEK OR EVERY OTHER WEEK
     Dates: start: 2005
  9. RAPAMUNE [Suspect]
     Active Substance: SIROLIMUS
     Indication: IMMUNOSUPPRESSANT DRUG THERAPY
  10. ASACOL HD [Concomitant]
     Active Substance: MESALAMINE
     Dosage: UNK
     Dates: start: 1998
  11. IRBESARTAN. [Concomitant]
     Active Substance: IRBESARTAN
     Dosage: UNK
     Dates: start: 2005

REACTIONS (6)
  - Hypertension [Not Recovered/Not Resolved]
  - Product use issue [Not Recovered/Not Resolved]
  - Malaise [Recovering/Resolving]
  - Nasopharyngitis [Recovering/Resolving]
  - Blood creatinine increased [Not Recovered/Not Resolved]
  - Cough [Recovering/Resolving]
